FAERS Safety Report 9903777 (Version 1)
Quarter: 2014Q1

REPORT INFORMATION
  Report Type: Spontaneous
  Country: US (occurrence: US)
  Receive Date: 20140218
  Receipt Date: 20140218
  Transmission Date: 20141002
  Serious: Yes (Other)
  Sender: FDA-Public Use
  Company Number: US-PFIZER INC-2014040426

PATIENT
  Age: 67 Year
  Sex: Female

DRUGS (1)
  1. GEMCITABINE HYDROCHLORIDE [Suspect]
     Indication: ADENOCARCINOMA PANCREAS
     Dosage: 1000 MG/M2, WEEKLY FOR 3 CONSECUTIVE WEEKS WITH 1 WEEK OF REST, REPEATED EVERY 4 WEEKS
     Route: 042
     Dates: start: 199602, end: 1997

REACTIONS (3)
  - Haemolytic uraemic syndrome [Recovering/Resolving]
  - Thrombotic microangiopathy [Recovering/Resolving]
  - Livedo reticularis [Recovering/Resolving]
